FAERS Safety Report 9820481 (Version 1)
Quarter: 2014Q1

REPORT INFORMATION
  Report Type: Spontaneous
  Country: NL (occurrence: None)
  Receive Date: 20140114
  Receipt Date: 20140114
  Transmission Date: 20141002
  Serious: Yes (Congenital Anomaly)
  Sender: FDA-Public Use
  Company Number: 2014P1000034

PATIENT
  Sex: Female

DRUGS (1)
  1. DEXAMETHASONE [Suspect]
     Indication: ADRENOGENITAL SYNDROME
     Dosage: ; TRPL
     Route: 064

REACTIONS (5)
  - Cognitive disorder [None]
  - Cleft palate [None]
  - Cleft lip [None]
  - Maternal drugs affecting foetus [None]
  - Memory impairment [None]
